FAERS Safety Report 5264598-6 (Version None)
Quarter: 2007Q1

REPORT INFORMATION
  Report Type: 
  Country: None (occurrence: None)
  Receive Date: 20061213
  Receipt Date: 20041022
  Transmission Date: 20070707
  Serious: Yes (Other)
  Sender: FDA-Public Use
  Company Number: 2004UW21975

PATIENT
  Age: 76 Year
  Sex: Male

DRUGS (1)
  1. IRESSA [Suspect]
     Dosage: 250 MG

REACTIONS (1)
  - MUSCLE SPASMS [None]
